FAERS Safety Report 15357173 (Version 4)
Quarter: 2020Q3

REPORT INFORMATION
  Report Type: Spontaneous
  Country: DE (occurrence: DE)
  Receive Date: 20180906
  Receipt Date: 20200807
  Transmission Date: 20201102
  Serious: Yes (Other)
  Sender: FDA-Public Use
  Company Number: PHHY2018DE088697

PATIENT
  Age: 37 Year
  Sex: Female
  Weight: 59.5 kg

DRUGS (4)
  1. PREDNISOLON [Suspect]
     Active Substance: PREDNISOLONE
     Indication: RHEUMATOID ARTHRITIS
     Dosage: 5 MG, QD
     Route: 048
     Dates: start: 20170510, end: 20180209
  2. ENBREL [Suspect]
     Active Substance: ETANERCEPT
     Indication: RHEUMATOID ARTHRITIS
     Dosage: 50 MG, (EVERY 10 DAY)
     Route: 058
  3. L THYROXIN [Concomitant]
     Active Substance: LEVOTHYROXINE SODIUM
     Indication: AUTOIMMUNE THYROIDITIS
     Dosage: 75 UG, QD
     Route: 048
     Dates: start: 20170510, end: 20180209
  4. FOLIO FORTE [Concomitant]
     Active Substance: FOLIC ACID\VITAMINS
     Indication: PROPHYLAXIS OF NEURAL TUBE DEFECT
     Dosage: 0.8 MG, QD
     Route: 048
     Dates: start: 20170510, end: 20180209

REACTIONS (2)
  - Gestational diabetes [Recovered/Resolved]
  - Amniotic fluid volume increased [Recovered/Resolved]
